FAERS Safety Report 6358363-6 (Version None)
Quarter: 2009Q3

REPORT INFORMATION
  Report Type: 
  Country: None (occurrence: None)
  Receive Date: 20090916
  Receipt Date: 20090910
  Transmission Date: 20100115
  Serious: Yes (Other)
  Sender: FDA-Public Use
  Company Number: ES-WYE-G03614809

PATIENT
  Age: 61 Year
  Sex: Male
  Weight: 62.8 kg

DRUGS (11)
  1. TYGACIL [Suspect]
     Indication: LOCALISED INTRAABDOMINAL FLUID COLLECTION
     Route: 042
     Dates: start: 20090129, end: 20090129
  2. TYGACIL [Suspect]
     Route: 042
     Dates: start: 20090129, end: 20090210
  3. DIFLUCAN [Concomitant]
     Route: 042
     Dates: start: 20090122, end: 20090222
  4. EMCONCOR [Concomitant]
     Route: 048
     Dates: start: 20080101
  5. KONAKION [Concomitant]
     Route: 042
     Dates: start: 20090202, end: 20090203
  6. PANTECTA [Concomitant]
     Route: 048
     Dates: start: 20090122
  7. TAVANIC [Concomitant]
     Route: 042
     Dates: start: 20090129
  8. URSOBIL [Concomitant]
     Route: 048
     Dates: start: 20081224
  9. ZOCOR [Concomitant]
     Route: 048
     Dates: start: 20081222
  10. ALBUMIN (HUMAN) [Concomitant]
     Route: 042
     Dates: start: 20090115, end: 20090215
  11. METOCLOPRAMIDE [Concomitant]
     Route: 042
     Dates: start: 20090202, end: 20090316

REACTIONS (1)
  - PANCYTOPENIA [None]
